FAERS Safety Report 7306820-8 (Version None)
Quarter: 2011Q1

REPORT INFORMATION
  Report Type: 
  Country: None (occurrence: None)
  Receive Date: 20110223
  Receipt Date: 20110216
  Transmission Date: 20110831
  Serious: Yes (Hospitalization)
  Sender: FDA-Public Use
  Company Number: JP-SP-2010-07127

PATIENT
  Age: 61 Year
  Sex: Male

DRUGS (4)
  1. GLIMEPIRIDE [Concomitant]
  2. ROSUVASTATIN CALCIUM [Concomitant]
  3. IMMUCYST [Suspect]
     Indication: BLADDER CANCER
     Route: 043
     Dates: start: 20101019, end: 20101130
  4. METFORMIN HYDROCHLORIDE [Concomitant]

REACTIONS (4)
  - DYSURIA [None]
  - POLLAKIURIA [None]
  - BOVINE TUBERCULOSIS [None]
  - PROSTATIC ABSCESS [None]
